FAERS Safety Report 13187607 (Version 2)
Quarter: 2017Q1

REPORT INFORMATION
  Report Type: Spontaneous
  Country: CA (occurrence: CA)
  Receive Date: 20170206
  Receipt Date: 20170214
  Transmission Date: 20170428
  Serious: Yes (Death, Hospitalization, Other)
  Sender: FDA-Public Use
  Company Number: CA-ORION CORPORATION ORION PHARMA-TREX2017-0405

PATIENT
  Sex: Male

DRUGS (2)
  1. METHOTREXATE (TRADE NAME UNKNOWN) [Suspect]
     Active Substance: METHOTREXATE
     Route: 065
     Dates: start: 20140731
  2. METHOTREXATE (TRADE NAME UNKNOWN) [Suspect]
     Active Substance: METHOTREXATE
     Indication: ARTHRALGIA
     Route: 065

REACTIONS (6)
  - Accidental overdose [Fatal]
  - Inappropriate schedule of drug administration [Unknown]
  - Drug dispensing error [Fatal]
  - Pain [Unknown]
  - Chemical burn of skin [Unknown]
  - Rash [Unknown]

NARRATIVE: CASE EVENT DATE: 20140731
